FAERS Safety Report 9664806 (Version 1)
Quarter: 2013Q4

REPORT INFORMATION
  Report Type: Spontaneous
  Country: US (occurrence: US)
  Receive Date: 20131101
  Receipt Date: 20131101
  Transmission Date: 20140711
  Serious: No
  Sender: FDA-Public Use
  Company Number: US-GLAXOSMITHKLINE-A1022680A

PATIENT
  Age: 53 Year
  Sex: Female

DRUGS (8)
  1. RYTHMOL SR [Suspect]
     Indication: ATRIAL FIBRILLATION
     Dosage: 225MG TWICE PER DAY
     Route: 048
     Dates: start: 20130419
  2. RYTHMOL [Suspect]
     Indication: ATRIAL FIBRILLATION
     Dosage: 150MG THREE TIMES PER DAY
     Route: 048
     Dates: start: 201303
  3. TRAMADOL [Concomitant]
  4. TEMAZEPAM [Concomitant]
  5. VENLAFAXINE [Concomitant]
  6. PHENAZEPAM [Concomitant]
  7. ATENOLOL [Concomitant]
  8. LEVOTHYROXINE [Concomitant]

REACTIONS (3)
  - Ill-defined disorder [Recovered/Resolved]
  - Dyspnoea [Recovered/Resolved]
  - Drug ineffective [Recovered/Resolved]
